FAERS Safety Report 23015445 (Version 3)
Quarter: 2023Q4

REPORT INFORMATION
  Report Type: Spontaneous
  Country: FR (occurrence: FR)
  Receive Date: 20231002
  Receipt Date: 20231107
  Transmission Date: 20240110
  Serious: Yes (Hospitalization)
  Sender: FDA-Public Use
  Company Number: FR-PHARMAAND-2023PHR00132

PATIENT
  Age: 25 Year
  Sex: Male
  Weight: 66 kg

DRUGS (4)
  1. PEGASYS [Suspect]
     Active Substance: PEGINTERFERON ALFA-2A
     Indication: Polycythaemia vera
     Dosage: 1 DOSAGE FORM EVERY 7 DAY(S)
     Route: 058
     Dates: start: 2018, end: 202211
  2. BISOPROLOL FUMARATE [Suspect]
     Active Substance: BISOPROLOL FUMARATE
     Indication: Myocarditis
     Dosage: 2.5 MG, 1X/DAY
     Route: 048
     Dates: start: 202204, end: 2023
  3. RAMIPRIL [Suspect]
     Active Substance: RAMIPRIL
     Indication: Myocarditis
     Dosage: 1.25 MG, 1X/DAY
     Route: 048
     Dates: start: 202204, end: 2023
  4. FLUINDIONE [Concomitant]
     Active Substance: FLUINDIONE
     Dosage: 0.75 DOSAGE FORM EVERY 1 DAY(S)
     Route: 048

REACTIONS (3)
  - Pleural effusion [Recovered/Resolved with Sequelae]
  - Organising pneumonia [Recovered/Resolved with Sequelae]
  - Off label use [Recovered/Resolved]

NARRATIVE: CASE EVENT DATE: 20180101
